FAERS Safety Report 6273425-X (Version None)
Quarter: 2009Q3

REPORT INFORMATION
  Report Type: 
  Country: None (occurrence: None)
  Receive Date: 20090713
  Receipt Date: 20081015
  Transmission Date: 20100115
  Serious: Yes (Disabling)
  Sender: FDA-Public Use
  Company Number: 591745

PATIENT
  Age: 52 Year
  Sex: Female
  Weight: 71.7 kg

DRUGS (5)
  1. BONIVA [Suspect]
     Indication: OSTEOPOROSIS
     Dosage: 150 MG 1 PER MONTH ORAL
     Route: 048
     Dates: start: 20080428, end: 20081001
  2. PREMPRO [Concomitant]
  3. CRESTOR [Concomitant]
  4. LEVOXYL [Concomitant]
  5. VOLTAREN [Concomitant]

REACTIONS (2)
  - ARTHRALGIA [None]
  - BONE PAIN [None]
